FAERS Safety Report 24421932 (Version 2)
Quarter: 2025Q3

REPORT INFORMATION
  Report Type: Report from Study
  Country: AR (occurrence: AR)
  Receive Date: 20241010
  Receipt Date: 20250809
  Transmission Date: 20251020
  Serious: Yes (Death, Other)
  Sender: ALEXION PHARMACEUTICALS
  Company Number: AR-AstraZeneca-CH-00709881A

PATIENT
  Age: 60 Year
  Sex: Female
  Weight: 56 kg

DRUGS (1)
  1. SOLIRIS [Suspect]
     Active Substance: ECULIZUMAB
     Indication: Atypical haemolytic uraemic syndrome
     Dosage: 1200 MILLIGRAM, Q2W

REACTIONS (1)
  - Death [Fatal]

NARRATIVE: CASE EVENT DATE: 20240917
